FAERS Safety Report 4312630-6 (Version None)
Quarter: 2004Q1

REPORT INFORMATION
  Report Type: 
  Country: None (occurrence: None)
  Receive Date: 20040305
  Receipt Date: 20020516
  Transmission Date: 20041129
  Serious: Yes (Hospitalization, Disabling)
  Sender: FDA-Public Use
  Company Number: WAES 0205USA02005

PATIENT
  Age: 54 Year
  Sex: Female
  Weight: 61 kg

DRUGS (4)
  1. PLENDIL [Concomitant]
     Dates: start: 20000101
  2. DYAZIDE [Concomitant]
     Dates: start: 20000101, end: 20030707
  3. VIOXX [Suspect]
     Indication: TENDONITIS
     Route: 048
     Dates: start: 20000911, end: 20001101
  4. VIOXX [Suspect]
     Indication: ARTHRITIS
     Route: 048
     Dates: start: 20000911, end: 20001101

REACTIONS (24)
  - ABDOMINAL DISTENSION [None]
  - ANGIOGRAM CEREBRAL ABNORMAL [None]
  - CARPAL TUNNEL SYNDROME [None]
  - CEREBROVASCULAR ACCIDENT [None]
  - CERVICOBRACHIAL SYNDROME [None]
  - CONSTIPATION [None]
  - CONVULSION [None]
  - DEMYELINATION [None]
  - DYSPEPSIA [None]
  - EMOTIONAL DISTRESS [None]
  - HAEMATOCHEZIA [None]
  - HYPERLIPIDAEMIA [None]
  - HYPERSENSITIVITY [None]
  - HYPERTENSION [None]
  - INJURY [None]
  - LYME DISEASE [None]
  - MITRAL VALVE INCOMPETENCE [None]
  - MYALGIA [None]
  - PULMONARY VALVE INCOMPETENCE [None]
  - SARCOIDOSIS [None]
  - SIMPLE PARTIAL SEIZURES [None]
  - TRICUSPID VALVE INCOMPETENCE [None]
  - URINE FLOW DECREASED [None]
  - WEIGHT INCREASED [None]
